FAERS Safety Report 11723699 (Version 1)
Quarter: 2015Q4

REPORT INFORMATION
  Report Type: Spontaneous
  Country: US (occurrence: US)
  Receive Date: 20151111
  Receipt Date: 20151111
  Transmission Date: 20160304
  Serious: No
  Sender: FDA-Public Use
  Company Number: US-PERRIGO-14US009826

PATIENT
  Age: 31 Year
  Sex: Female
  Weight: 67.12 kg

DRUGS (3)
  1. NICOTINE POLACRILEX [Suspect]
     Active Substance: NICOTINE
     Dosage: 4 MG, SINGLE AT 1445
     Dates: start: 20141001, end: 20141001
  2. ANTI-SMOKING AGENTS [Concomitant]
     Active Substance: UNSPECIFIED INGREDIENT
     Indication: SMOKING CESSATION THERAPY
     Dosage: 21 MG, UNKNOWN
     Route: 062
     Dates: start: 20141001, end: 20141001
  3. NICOTINE POLACRILEX [Suspect]
     Active Substance: NICOTINE
     Indication: SMOKING CESSATION THERAPY
     Dosage: 4 MG, SINGLE AT 1000
     Route: 002
     Dates: start: 20141001, end: 20141001

REACTIONS (1)
  - Hiccups [Recovered/Resolved]

NARRATIVE: CASE EVENT DATE: 20141001
